FAERS Safety Report 9399112 (Version 1)
Quarter: 2013Q3

REPORT INFORMATION
  Report Type: Report from Study
  Country: CN (occurrence: CN)
  Receive Date: 20130715
  Receipt Date: 20130715
  Transmission Date: 20140515
  Serious: Yes (Hospitalization, Other)
  Sender: FDA-Public Use
  Company Number: CN-ROCHE-1248262

PATIENT
  Sex: Female
  Weight: 53.5 kg

DRUGS (9)
  1. CELLCEPT [Suspect]
     Indication: RENAL TRANSPLANT
     Route: 048
     Dates: start: 20050226, end: 2007
  2. CELLCEPT [Suspect]
     Dosage: 250MG IN THE MORNING,500MG IN THE EVENING
     Route: 048
     Dates: start: 2007
  3. TACROLIMUS [Concomitant]
     Indication: RENAL TRANSPLANT
     Dosage: 2MG IN THE MORNING, 3MG IN THE EVENING
     Route: 048
     Dates: start: 20050206, end: 2007
  4. TACROLIMUS [Concomitant]
     Route: 048
     Dates: start: 2007, end: 2012
  5. TACROLIMUS [Concomitant]
     Dosage: 2MG IN THE MORNING, 3MG IN THE EVENING
     Route: 048
     Dates: start: 201212
  6. TACROLIMUS [Concomitant]
     Route: 048
  7. PREDNISONE [Concomitant]
     Indication: RENAL TRANSPLANT
     Route: 048
     Dates: start: 20050226, end: 2012
  8. PREDNISONE [Concomitant]
     Route: 048
     Dates: start: 2012
  9. SIROLIMUS [Concomitant]
     Indication: RENAL TRANSPLANT
     Dosage: FORM STRENGTH: 1ML:1MG/60ML/BOTTLE.
     Route: 048
     Dates: start: 2007

REACTIONS (3)
  - Bladder cancer [Unknown]
  - Haematuria [Unknown]
  - Blood creatinine increased [Recovered/Resolved]
